FAERS Safety Report 12598990 (Version 2)
Quarter: 2016Q3

REPORT INFORMATION
  Report Type: Spontaneous
  Country: US (occurrence: US)
  Receive Date: 20160727
  Receipt Date: 20160901
  Transmission Date: 20161109
  Serious: Yes (Other)
  Sender: FDA-Public Use
  Company Number: US-BAYER-2016-143671

PATIENT
  Age: 71 Year
  Sex: Female
  Weight: 70.75 kg

DRUGS (17)
  1. STIVARGA [Suspect]
     Active Substance: REGORAFENIB
     Indication: COLON CANCER METASTATIC
     Dosage: 160MG, DAIYL (START AT 80MG/DAY FOR 21 DAYS AND THEN INCREASE GRADUALLY)
     Dates: end: 201605
  2. GABAPENTIN. [Concomitant]
     Active Substance: GABAPENTIN
  3. VITAMIN B12 [Concomitant]
     Active Substance: CYANOCOBALAMIN
  4. DURAGESIC [Concomitant]
     Active Substance: FENTANYL
  5. APAP W/HYDROCODONE [Concomitant]
     Active Substance: ACETAMINOPHEN\HYDROCODONE
  6. BEANO [Concomitant]
     Active Substance: ASPERGILLUS NIGER .ALPHA.-GALACTOSIDASE
     Dosage: AS REQUIRED
  7. SUTENT [Suspect]
     Active Substance: SUNITINIB MALATE
     Indication: COLON CANCER
     Dosage: 50 MG, DAILY
     Dates: start: 20160624
  8. VITAMIN D3 [Concomitant]
     Active Substance: CHOLECALCIFEROL
  9. CALCIUM [Concomitant]
     Active Substance: CALCIUM
  10. CELEXA [Concomitant]
     Active Substance: CITALOPRAM HYDROBROMIDE
  11. ZOLOFT [Concomitant]
     Active Substance: SERTRALINE HYDROCHLORIDE
  12. PHILLIPS COLON HEALTH PRIOBIOTICS WITH METABOLISM SUPPORT [Concomitant]
  13. LOMOTIL [DIPHENOXYLATE HYDROCHLORIDE] [Concomitant]
  14. NEURONTIN [Concomitant]
     Active Substance: GABAPENTIN
  15. NORCO [Concomitant]
     Active Substance: ACETAMINOPHEN\HYDROCODONE BITARTRATE
  16. VITAMIN A [Concomitant]
     Active Substance: VITAMIN A
  17. VITAMIN D [Concomitant]
     Active Substance: CHOLECALCIFEROL

REACTIONS (9)
  - Neuropathy peripheral [None]
  - Colon cancer [None]
  - Gait disturbance [None]
  - Limb discomfort [None]
  - Palmar-plantar erythrodysaesthesia syndrome [None]
  - Skin papilloma [None]
  - Arthralgia [None]
  - Hyperkeratosis [None]
  - Treatment failure [None]
